FAERS Safety Report 18111753 (Version 1)
Quarter: 2020Q3

REPORT INFORMATION
  Report Type: Report from Study
  Country: US (occurrence: US)
  Receive Date: 20200805
  Receipt Date: 20200805
  Transmission Date: 20201103
  Serious: Yes (Other)
  Sender: FDA-Public Use
  Company Number: US-GILEAD-2020-0488660

PATIENT
  Age: 78 Year
  Sex: Female

DRUGS (1)
  1. AZTREONAM LYSINE [Suspect]
     Active Substance: AZTREONAM LYSINE
     Indication: CYSTIC FIBROSIS
     Dosage: 75 MG, TID; 28 DAYS ON 28 DAYS OFF
     Route: 055
     Dates: start: 201906

REACTIONS (7)
  - Amnesia [Unknown]
  - Cellulitis [Unknown]
  - Loss of personal independence in daily activities [Unknown]
  - Mental status changes [Not Recovered/Not Resolved]
  - Rehabilitation therapy [Unknown]
  - Lumbar vertebral fracture [Unknown]
  - Weight decreased [Not Recovered/Not Resolved]

NARRATIVE: CASE EVENT DATE: 20200624
